FAERS Safety Report 7826181-5 (Version None)
Quarter: 2011Q4

REPORT INFORMATION
  Report Type: 
  Country: None (occurrence: None)
  Receive Date: 20111020
  Receipt Date: 20111011
  Transmission Date: 20120403
  Serious: Yes (Hospitalization)
  Sender: FDA-Public Use
  Company Number: US-BIOGENIDEC-2011BI000614

PATIENT
  Age: 53 Year
  Sex: Female
  Weight: 58 kg

DRUGS (1)
  1. TYSABRI [Suspect]
     Indication: MULTIPLE SCLEROSIS
     Route: 042
     Dates: start: 20091113

REACTIONS (30)
  - MENTAL STATUS CHANGES [None]
  - GENERALISED ERYTHEMA [None]
  - ARTHRITIS [None]
  - DIARRHOEA [None]
  - BLOOD SODIUM DECREASED [None]
  - DEPRESSION [None]
  - BONE DISORDER [None]
  - POSTOPERATIVE WOUND INFECTION [None]
  - APHAGIA [None]
  - CENTRAL NERVOUS SYSTEM LESION [None]
  - MULTIPLE SCLEROSIS RELAPSE [None]
  - PRURITUS ALLERGIC [None]
  - HYPOAESTHESIA [None]
  - HAEMATOCRIT DECREASED [None]
  - FLUID INTAKE REDUCED [None]
  - HEADACHE [None]
  - OEDEMA PERIPHERAL [None]
  - MUSCULAR WEAKNESS [None]
  - BALANCE DISORDER [None]
  - INFLUENZA LIKE ILLNESS [None]
  - CHEST PAIN [None]
  - DYSPNOEA [None]
  - CARPAL TUNNEL SYNDROME [None]
  - COORDINATION ABNORMAL [None]
  - RASH [None]
  - DYSURIA [None]
  - FATIGUE [None]
  - HAEMOGLOBIN DECREASED [None]
  - MENTAL IMPAIRMENT [None]
  - SUICIDAL IDEATION [None]
